FAERS Safety Report 9806037 (Version 2)
Quarter: 2014Q3

REPORT INFORMATION
  Report Type: Spontaneous
  Country: GB (occurrence: None)
  Receive Date: 20140107
  Receipt Date: 20140714
  Transmission Date: 20150326
  Serious: Yes (Disabling, Other)
  Sender: FDA-Public Use
  Company Number: AUR-APL-2014-00009

PATIENT
  Sex: Female

DRUGS (1)
  1. CIPROFLOXACIN (CIPROFLOXACIN) UNKNOWN, UNKNOWN [Suspect]
     Active Substance: CIPROFLOXACIN
     Indication: PRODUCT USED FOR UNKNOWN INDICATION

REACTIONS (13)
  - Back pain [None]
  - Pain [None]
  - Fear [None]
  - Impaired work ability [None]
  - Activities of daily living impaired [None]
  - Neuralgia [None]
  - Arthralgia [None]
  - Emotional distress [None]
  - Sleep disorder [None]
  - Stress [None]
  - Formication [None]
  - Spinal pain [None]
  - Pain in extremity [None]
